FAERS Safety Report 11012621 (Version 1)
Quarter: 2015Q2

REPORT INFORMATION
  Report Type: Spontaneous
  Country: US (occurrence: None)
  Receive Date: 20150410
  Receipt Date: 20150410
  Transmission Date: 20150821
  Serious: Yes (Hospitalization)
  Sender: FDA-Public Use
  Company Number: None

PATIENT
  Age: 53 Year
  Sex: Female
  Weight: 72.58 kg

DRUGS (2)
  1. HUMERIA [Concomitant]
  2. FLONASE [Suspect]
     Active Substance: FLUTICASONE PROPIONATE
     Dosage: SPRAY ONCE IN EACH NOSTRAL
     Dates: start: 20150323, end: 20150331

REACTIONS (5)
  - Swelling face [None]
  - Nasal congestion [None]
  - Erythema [None]
  - Dry skin [None]
  - Cellulitis [None]

NARRATIVE: CASE EVENT DATE: 20150403
